FAERS Safety Report 5372193-3 (Version None)
Quarter: 2007Q2

REPORT INFORMATION
  Report Type: 
  Country: None (occurrence: None)
  Receive Date: 20070627
  Receipt Date: 20070618
  Transmission Date: 20071010
  Serious: Yes (Hospitalization, Other)
  Sender: FDA-Public Use
  Company Number: B0436226A

PATIENT
  Age: 66 Year
  Sex: Male

DRUGS (12)
  1. EPIVIR [Suspect]
     Indication: ACQUIRED IMMUNODEFICIENCY SYNDROME
     Dosage: 150MG TWICE PER DAY
     Route: 048
     Dates: start: 20041222, end: 20060529
  2. ZIAGEN [Suspect]
     Indication: ACQUIRED IMMUNODEFICIENCY SYNDROME
     Dosage: 150MG TWICE PER DAY
     Route: 048
     Dates: start: 20041231, end: 20060529
  3. RETROVIR [Suspect]
     Indication: ACQUIRED IMMUNODEFICIENCY SYNDROME
     Dosage: 400MG PER DAY
     Route: 048
     Dates: start: 20041222, end: 20041230
  4. KALETRA [Suspect]
     Indication: ACQUIRED IMMUNODEFICIENCY SYNDROME
     Dosage: 6CAP PER DAY
     Route: 048
     Dates: start: 20041222, end: 20060529
  5. BAKTAR [Suspect]
     Indication: PNEUMOCYSTIS JIROVECI PNEUMONIA
     Route: 048
     Dates: start: 20041118, end: 20060529
  6. BENAMBAX [Concomitant]
     Dosage: 180MG PER DAY
     Route: 042
     Dates: start: 20041127, end: 20041208
  7. FUNGUARD [Concomitant]
     Indication: ASPERGILLOSIS
     Route: 042
     Dates: start: 20041118, end: 20050214
  8. GLYCEOL [Concomitant]
     Route: 042
     Dates: start: 20041210, end: 20050124
  9. DECADRON [Concomitant]
     Dates: start: 20041227, end: 20050302
  10. SEISHOKU [Concomitant]
     Dosage: 50ML PER DAY
     Dates: start: 20041227, end: 20050220
  11. LAXOBERON [Concomitant]
     Indication: CONSTIPATION
     Route: 048
     Dates: start: 20041117, end: 20050221
  12. MAGNESIUM OXIDE [Concomitant]
     Indication: CONSTIPATION
     Dosage: 2G PER DAY
     Route: 048
     Dates: start: 20050221, end: 20060529

REACTIONS (3)
  - HYPOACUSIS [None]
  - OTITIS MEDIA [None]
  - PANCYTOPENIA [None]
